FAERS Safety Report 6844012-7 (Version None)
Quarter: 2010Q3

REPORT INFORMATION
  Report Type: 
  Country: None (occurrence: None)
  Receive Date: 20100715
  Receipt Date: 20100702
  Transmission Date: 20110219
  Serious: Yes (Hospitalization)
  Sender: FDA-Public Use
  Company Number: US-WATSON-2010-09164

PATIENT
  Age: 29 Year
  Sex: Female

DRUGS (2)
  1. TOPIRAMATE [Suspect]
     Indication: PRODUCT USED FOR UNKNOWN INDICATION
     Dosage: 50 MG, BID
     Route: 048
  2. TOPIRAMATE [Suspect]
     Dosage: 25 MG, BID

REACTIONS (4)
  - ACUTE PSYCHOSIS [None]
  - DEHYDRATION [None]
  - MYOCLONUS [None]
  - PYREXIA [None]
